FAERS Safety Report 7225110-5 (Version None)
Quarter: 2011Q1

REPORT INFORMATION
  Report Type: 
  Country: None (occurrence: None)
  Receive Date: 20110113
  Receipt Date: 20110104
  Transmission Date: 20110831
  Serious: Yes (Death)
  Sender: FDA-Public Use
  Company Number: A0661033A

PATIENT
  Age: 39 Year
  Sex: Female

DRUGS (9)
  1. KYTRIL [Concomitant]
  2. OXYCONTIN [Concomitant]
  3. COUMADIN [Concomitant]
  4. LEVOTHYROXINE [Concomitant]
  5. TYKERB [Suspect]
     Indication: BREAST CANCER
     Dosage: 1250MG PER DAY
     Route: 048
     Dates: start: 20070602, end: 20070629
  6. TYKERB [Suspect]
     Dosage: 250MG UNKNOWN
     Dates: start: 20090930
  7. XELODA [Concomitant]
  8. COREG [Concomitant]
  9. IMODIUM [Concomitant]

REACTIONS (7)
  - DECREASED APPETITE [None]
  - DEATH [None]
  - WEIGHT DECREASED [None]
  - NAUSEA [None]
  - DIARRHOEA [None]
  - VOMITING [None]
  - ABDOMINAL DISCOMFORT [None]
